FAERS Safety Report 11652444 (Version 3)
Quarter: 2016Q3

REPORT INFORMATION
  Report Type: Spontaneous
  Country: US (occurrence: US)
  Receive Date: 20151022
  Receipt Date: 20160819
  Transmission Date: 20161109
  Serious: Yes (Hospitalization)
  Sender: FDA-Public Use
  Company Number: US-SA-2015SA166596

PATIENT
  Age: 53 Year
  Sex: Male

DRUGS (18)
  1. ASPIRIN. [Concomitant]
     Active Substance: ASPIRIN
     Route: 048
  2. OXYCODONE/PARACETAMOL [Concomitant]
     Dosage: 10-325 MG TABLETS
     Route: 048
  3. LEMTRADA [Suspect]
     Active Substance: ALEMTUZUMAB
     Indication: MULTIPLE SCLEROSIS
     Route: 041
     Dates: start: 20150720, end: 20150724
  4. AMARYL [Concomitant]
     Active Substance: GLIMEPIRIDE
     Route: 048
  5. VALIUM [Concomitant]
     Active Substance: DIAZEPAM
     Route: 048
  6. CRESTOR [Concomitant]
     Active Substance: ROSUVASTATIN CALCIUM
     Route: 048
  7. LOPRESSOR [Concomitant]
     Active Substance: METOPROLOL TARTRATE
     Dosage: IN MORNING
     Route: 048
  8. VITAMIN D3 [Concomitant]
     Active Substance: CHOLECALCIFEROL
     Route: 048
  9. BACLOFEN. [Concomitant]
     Active Substance: BACLOFEN
     Route: 048
  10. LANTUS SOLOSTAR [Concomitant]
     Active Substance: INSULIN GLARGINE
     Dosage: DOSE:100 UNIT(S)
     Route: 058
  11. VENTOLIN HFA [Concomitant]
     Active Substance: ALBUTEROL SULFATE
     Dosage: 2 PUFFS
     Route: 055
  12. ALBUTEROL. [Concomitant]
     Active Substance: ALBUTEROL
     Route: 055
  13. MORPHINE [Concomitant]
     Active Substance: MORPHINE
     Route: 048
  14. NOVOLOG [Concomitant]
     Active Substance: INSULIN ASPART
     Dosage: 70/30 SUBCUTANEOUS SUSPENSION
     Route: 058
  15. TRICOR [Concomitant]
     Active Substance: FENOFIBRATE
     Dosage: AT NIGHT
     Route: 048
  16. VIAGRA [Concomitant]
     Active Substance: SILDENAFIL CITRATE
     Route: 048
  17. PROVIGIL [Concomitant]
     Active Substance: MODAFINIL
     Route: 048
  18. GABAPENTIN. [Concomitant]
     Active Substance: GABAPENTIN
     Dosage: 1 TABLET IN MORNING AND 2 AT HS
     Route: 048

REACTIONS (4)
  - Pneumonia aspiration [Recovered/Resolved]
  - Pyrexia [Recovered/Resolved]
  - Staphylococcal infection [Recovered/Resolved]
  - Pulmonary congestion [Recovered/Resolved]

NARRATIVE: CASE EVENT DATE: 20150727
